FAERS Safety Report 9233429 (Version 1)
Quarter: 2013Q2

REPORT INFORMATION
  Report Type: Spontaneous
  Country: US (occurrence: US)
  Receive Date: 20130416
  Receipt Date: 20130416
  Transmission Date: 20140414
  Serious: No
  Sender: FDA-Public Use
  Company Number: US-BANPHARM-20120042

PATIENT
  Age: 78 Year
  Sex: Female
  Weight: 91 kg

DRUGS (5)
  1. ALEVE LIQUID GELS 220 MG [Suspect]
     Indication: ARTHRITIS
     Dosage: 220 MG, TWICE DAILY,
     Route: 048
  2. BAYER ASPIRIN [Concomitant]
     Dosage: DAILY
  3. DIURETIC [Concomitant]
  4. METFORMIN [Concomitant]
  5. ST. JOSEPH ASPIRIN [Concomitant]

REACTIONS (1)
  - Dyspnoea [Not Recovered/Not Resolved]
